FAERS Safety Report 16969301 (Version 4)
Quarter: 2020Q1

REPORT INFORMATION
  Report Type: Spontaneous
  Country: DE (occurrence: DE)
  Receive Date: 20191029
  Receipt Date: 20200108
  Transmission Date: 20200409
  Serious: Yes (Death, Hospitalization)
  Sender: FDA-Public Use
  Company Number: DE-ROCHE-2446756

PATIENT
  Age: 62 Year
  Sex: Female

DRUGS (2)
  1. ZOSTEX [Suspect]
     Active Substance: BRIVUDINE
     Indication: HERPES ZOSTER
     Route: 048
     Dates: start: 201909, end: 201909
  2. CAPECITABINE. [Suspect]
     Active Substance: CAPECITABINE
     Indication: PRODUCT USED FOR UNKNOWN INDICATION
     Route: 048

REACTIONS (5)
  - Diarrhoea [Fatal]
  - Vomiting [Fatal]
  - Oral disorder [Fatal]
  - Contraindicated product administered [Unknown]
  - Sepsis [Fatal]

NARRATIVE: CASE EVENT DATE: 201909
